FAERS Safety Report 5862168-X (Version None)
Quarter: 2008Q3

REPORT INFORMATION
  Report Type: 
  Country: None (occurrence: None)
  Receive Date: 20080826
  Receipt Date: 20080811
  Transmission Date: 20090109
  Serious: Yes (Death)
  Sender: FDA-Public Use
  Company Number: 2008001980

PATIENT
  Age: 62 Year
  Sex: Male

DRUGS (3)
  1. ERLOTINIB (ERLOTINIB) (TABLET) (ERLOTINIB) [Suspect]
     Indication: ADENOCARCINOMA PANCREAS
     Dosage: (100 MG,QD),ORAL
     Route: 048
     Dates: start: 20080317, end: 20080711
  2. GEMCITABINE [Suspect]
     Dosage: (1000 MG/M2), INTRAVENOUS
     Route: 042
     Dates: start: 20080317, end: 20080527
  3. IMODIUM [Concomitant]

REACTIONS (2)
  - PNEUMONIA ASPIRATION [None]
  - VOMITING [None]
